FAERS Safety Report 22298953 (Version 1)
Quarter: 2023Q2

REPORT INFORMATION
  Report Type: Spontaneous
  Country: US (occurrence: None)
  Receive Date: 20230508
  Receipt Date: 20230508
  Transmission Date: 20230722
  Serious: Yes (Hospitalization)
  Sender: FDA-Public Use
  Company Number: None

PATIENT
  Sex: Female

DRUGS (2)
  1. DEFERASIROX ORAL [Suspect]
     Active Substance: DEFERASIROX
     Indication: Sickle cell disease
     Dosage: FREQUENCY : DAILY;?
     Route: 048
     Dates: start: 20221219
  2. DEFERASIROX ORAL [Suspect]
     Active Substance: DEFERASIROX
     Indication: Thalassaemia

REACTIONS (2)
  - Sickle cell anaemia with crisis [None]
  - Therapy interrupted [None]
